FAERS Safety Report 6725216-0 (Version None)
Quarter: 2010Q2

REPORT INFORMATION
  Report Type: 
  Country: None (occurrence: None)
  Receive Date: 20100514
  Receipt Date: 20100505
  Transmission Date: 20101027
  Serious: Yes (Other)
  Sender: FDA-Public Use
  Company Number: PHEH2010US02338

PATIENT
  Sex: Male

DRUGS (10)
  1. STALEVO 100 [Suspect]
     Dosage: 150 UNK, QID
     Dates: start: 20060101
  2. REQUIP [Concomitant]
  3. ROPINIROLE [Concomitant]
     Dosage: 2.0 MG, UNK
  4. AZILECT [Concomitant]
     Dosage: 0.5 MG, UNK
  5. LEVOTHYROXINE SODIUM [Concomitant]
  6. OMEPRAZOLE [Concomitant]
  7. PROPAFENONE HCL [Concomitant]
  8. DILTIAZEM HCL [Concomitant]
  9. WARFARIN SODIUM [Concomitant]
  10. TRIAMCINOLONE [Concomitant]

REACTIONS (13)
  - ABNORMAL DREAMS [None]
  - ATRIAL FIBRILLATION [None]
  - BALANCE DISORDER [None]
  - BLOOD PRESSURE DECREASED [None]
  - DIZZINESS [None]
  - DRUG INEFFECTIVE [None]
  - DYSKINESIA [None]
  - GAIT DISTURBANCE [None]
  - HALLUCINATION [None]
  - PARKINSON'S DISEASE [None]
  - SOMNOLENCE [None]
  - SUDDEN ONSET OF SLEEP [None]
  - TREMOR [None]
